FAERS Safety Report 8623584 (Version 5)
Quarter: 2013Q2

REPORT INFORMATION
  Report Type: Spontaneous
  Country: US (occurrence: US)
  Receive Date: 20120620
  Receipt Date: 20130403
  Transmission Date: 20140414
  Serious: Yes (Other)
  Sender: FDA-Public Use
  Company Number: US-PFIZER INC-2012145053

PATIENT
  Age: 57 Year
  Sex: Male
  Weight: 83.9 kg

DRUGS (2)
  1. LYRICA [Suspect]
     Indication: CONVULSION
     Dosage: 200 MG, 2X/DAY
     Route: 048
  2. LACTULOSE [Concomitant]
     Dosage: 60 ML, 2X/DAY

REACTIONS (5)
  - Throat cancer [Recovering/Resolving]
  - Neoplasm malignant [Unknown]
  - Hypoacusis [Unknown]
  - Ear disorder [Unknown]
  - Malaise [Unknown]
